FAERS Safety Report 26130937 (Version 1)
Quarter: 2025Q4

REPORT INFORMATION
  Report Type: Spontaneous
  Country: EU (occurrence: EU)
  Receive Date: 20251208
  Receipt Date: 20251208
  Transmission Date: 20260118
  Serious: Yes (Other)
  Sender: CELLTRION
  Company Number: EU-SAMSUNG BIOEPIS-SB-2025-39000

PATIENT

DRUGS (4)
  1. INFLIXIMAB [Suspect]
     Active Substance: INFLIXIMAB
     Indication: Colitis ulcerative
     Dosage: 5 MG/KG, WEEK 0/STARTED WITH INTRAVENOUS INFLIXIMAB MONOTHERAPY, WITH THE FIRST TWO INFUSIONS AT WEE
     Route: 042
     Dates: start: 2024
  2. INFLIXIMAB [Suspect]
     Active Substance: INFLIXIMAB
     Dosage: 5 MG/KG, WEEK 2 STARTED WITH INTRAVENOUS INFLIXIMAB MONOTHERAPY, WITH THE FIRST TWO INFUSIONS AT WEE
     Route: 042
     Dates: start: 2024
  3. INFLIXIMAB [Suspect]
     Active Substance: INFLIXIMAB
     Dosage: 10 MG/KG, WEEK 6/INFLIXIMAB WAS OPTIMIZED BY DOUBLING THE DOSE FROM WEEK  6 ONWARDS, THEN INCREASING
     Route: 042
     Dates: start: 202408
  4. INFLIXIMAB [Suspect]
     Active Substance: INFLIXIMAB
     Dosage: 10 MG/KG, MONTHLY (EVERY 4 WEEKS)
     Route: 042
     Dates: start: 2024

REACTIONS (7)
  - Generalised oedema [Unknown]
  - Hypoalbuminaemia [Unknown]
  - Colorectal adenoma [Unknown]
  - Microcytic anaemia [Unknown]
  - Therapeutic product effect incomplete [Unknown]
  - Off label use [Unknown]
  - Off label use [Unknown]

NARRATIVE: CASE EVENT DATE: 20240101
